FAERS Safety Report 5141182-6 (Version None)
Quarter: 2006Q4

REPORT INFORMATION
  Report Type: 
  Country: None (occurrence: None)
  Receive Date: 20061101
  Receipt Date: 20061026
  Transmission Date: 20070319
  Serious: Yes (Life-Threatening, Other)
  Sender: FDA-Public Use
  Company Number: PHHO2006US17925

PATIENT
  Age: 53 Year
  Sex: Female
  Weight: 71 kg

DRUGS (5)
  1. LIPITOR [Concomitant]
     Indication: HYPERCHOLESTEROLAEMIA
     Dosage: 40 MG, QD
     Route: 048
     Dates: start: 20060718
  2. METFORMIN HCL [Suspect]
     Indication: DIABETES MELLITUS NON-INSULIN-DEPENDENT
     Dosage: 1000 MG, BID
     Route: 048
     Dates: start: 20050228, end: 20061026
  3. ALISKIREN OR PLACEBO [Suspect]
     Indication: ESSENTIAL HYPERTENSION
     Dosage: 150 - 300 MG/DAY
     Route: 048
     Dates: start: 20060912, end: 20061026
  4. VALSARTAN [Suspect]
     Indication: ESSENTIAL HYPERTENSION
     Dosage: CODE NOT BROKEN
     Route: 048
     Dates: start: 20060912, end: 20061026
  5. ESIDRIX [Suspect]
     Indication: ESSENTIAL HYPERTENSION
     Dosage: 25 MG, QD
     Route: 048
     Dates: start: 20060912, end: 20061026

REACTIONS (2)
  - HYPERKALAEMIA [None]
  - RENAL FAILURE [None]
